FAERS Safety Report 7005826-6 (Version None)
Quarter: 2010Q3

REPORT INFORMATION
  Report Type: 
  Country: None (occurrence: None)
  Receive Date: 20100921
  Receipt Date: 20100915
  Transmission Date: 20110219
  Serious: Yes (Hospitalization, Other)
  Sender: FDA-Public Use
  Company Number: GB-ELI_LILLY_AND_COMPANY-GB201009003504

PATIENT
  Age: 43 Year
  Sex: Male
  Weight: 84 kg

DRUGS (6)
  1. BYETTA [Suspect]
     Indication: TYPE 2 DIABETES MELLITUS
     Dosage: 5 UG, UNKNOWN
     Route: 065
     Dates: start: 20090901, end: 20091001
  2. ASPIRIN [Concomitant]
     Dosage: 75 MG, DAILY (1/D)
     Route: 048
  3. CITALOPRAM HYDROBROMIDE [Concomitant]
     Dosage: 40 MG, DAILY (1/D)
     Route: 048
  4. METFORMIN [Concomitant]
     Dosage: 1 G, 2/D
     Route: 048
  5. PIOGLITAZONE [Concomitant]
     Dosage: 30 MG, DAILY (1/D)
     Route: 048
  6. SIMVASTATIN [Concomitant]
     Dosage: 40 MG, DAILY (1/D)
     Route: 065

REACTIONS (3)
  - GASTRIC ULCER [None]
  - GASTRIC VARICES [None]
  - PANCREATIC CARCINOMA [None]
